FAERS Safety Report 8253470-5 (Version None)
Quarter: 2012Q2

REPORT INFORMATION
  Report Type: 
  Country: None (occurrence: None)
  Receive Date: 20120402
  Receipt Date: 20120301
  Transmission Date: 20120825
  Serious: No
  Sender: FDA-Public Use
  Company Number: US-AMGEN-USASP2012013819

PATIENT
  Age: 16 Year
  Sex: Female
  Weight: 55.6 kg

DRUGS (4)
  1. MELOXICAM [Concomitant]
     Dosage: UNK MG, UNK
  2. METHOTREXATE [Concomitant]
     Dosage: 1 MG, UNK
  3. ACTEMRA [Concomitant]
     Dosage: UNK
  4. ENBREL [Suspect]
     Indication: JUVENILE ARTHRITIS
     Dosage: 50 MG, 2 TIMES/WK (25MG/ML)
     Route: 058
     Dates: start: 20120126, end: 20120221

REACTIONS (4)
  - DRUG EFFECT DECREASED [None]
  - INJECTION SITE PAIN [None]
  - OPEN WOUND [None]
  - GENITAL HERPES [None]
